FAERS Safety Report 5515418-3 (Version None)
Quarter: 2007Q4

REPORT INFORMATION
  Report Type: 
  Country: None (occurrence: None)
  Receive Date: 20071113
  Receipt Date: 20070212
  Transmission Date: 20080405
  Serious: No
  Sender: FDA-Public Use
  Company Number: A0639227A

PATIENT
  Sex: Female

DRUGS (6)
  1. COREG [Suspect]
     Route: 048
     Dates: start: 20061101
  2. AVAPRO [Concomitant]
  3. PRILOSEC [Concomitant]
  4. ASPIRIN [Concomitant]
  5. ZYRTEC [Concomitant]
  6. WARFARIN SODIUM [Concomitant]

REACTIONS (7)
  - BALANCE DISORDER [None]
  - DIZZINESS [None]
  - HEADACHE [None]
  - HYPERTENSION [None]
  - NAUSEA [None]
  - PRURITUS [None]
  - VISION BLURRED [None]
